FAERS Safety Report 6825602-4 (Version None)
Quarter: 2010Q3

REPORT INFORMATION
  Report Type: 
  Country: None (occurrence: None)
  Receive Date: 20100708
  Receipt Date: 20070222
  Transmission Date: 20110219
  Serious: No
  Sender: FDA-Public Use
  Company Number: US-PFIZER INC-2007001772

PATIENT
  Sex: Male
  Weight: 81.65 kg

DRUGS (4)
  1. CHANTIX [Suspect]
     Indication: SMOKING CESSATION THERAPY
     Dates: start: 20061201
  2. PAROXETINE HCL [Concomitant]
     Indication: DEPRESSION
  3. REMICADE [Concomitant]
     Indication: ANKYLOSING SPONDYLITIS
  4. NORVASC [Concomitant]
     Indication: RAYNAUD'S PHENOMENON

REACTIONS (3)
  - DEPRESSION [None]
  - DIZZINESS [None]
  - TREMOR [None]
